FAERS Safety Report 19595582 (Version 1)
Quarter: 2021Q3

REPORT INFORMATION
  Report Type: Spontaneous
  Country: US (occurrence: US)
  Receive Date: 20210722
  Receipt Date: 20210722
  Transmission Date: 20211014
  Serious: No
  Sender: FDA-Public Use
  Company Number: US-SA-2021SA239654

PATIENT
  Age: 86 Year
  Sex: Female

DRUGS (1)
  1. ALLEGRA ALLERGY [Suspect]
     Active Substance: FEXOFENADINE HYDROCHLORIDE
     Dosage: DRUG STRUCTURE DOSAGE : SEE DESCRIPTION OF EVENT DRUG INTERVAL DOSAGE : SEE DESCRIPTION OF EVENT DRU
     Route: 065

REACTIONS (2)
  - Extra dose administered [Unknown]
  - Headache [Unknown]
